FAERS Safety Report 16658405 (Version 1)
Quarter: 2019Q3

REPORT INFORMATION
  Report Type: Spontaneous
  Country: US (occurrence: US)
  Receive Date: 20190801
  Receipt Date: 20190801
  Transmission Date: 20191004
  Serious: Yes (Hospitalization)
  Sender: FDA-Public Use
  Company Number: None

PATIENT
  Age: 70 Year
  Sex: Female

DRUGS (4)
  1. OXYCODONE/APAP TAB 10-325 MG [Concomitant]
  2. IBRANCE [Suspect]
     Active Substance: PALBOCICLIB
     Indication: BREAST CANCER FEMALE
     Route: 048
     Dates: start: 20180809
  3. METFORMIN TAB 500 MG ER [Concomitant]
  4. GABAPENTIN TAB 800 MG [Concomitant]

REACTIONS (1)
  - Cystitis [None]
